FAERS Safety Report 25685831 (Version 2)
Quarter: 2025Q3

REPORT INFORMATION
  Report Type: Spontaneous
  Country: KR (occurrence: KR)
  Receive Date: 20250815
  Receipt Date: 20250827
  Transmission Date: 20251021
  Serious: Yes (Death, Hospitalization, Other)
  Sender: MYLAN
  Company Number: KR-MYLANLABS-2025M1069391

PATIENT
  Age: 44 Year
  Sex: Female

DRUGS (5)
  1. CLOZARIL [Suspect]
     Active Substance: CLOZAPINE
     Indication: Schizophrenia
     Dates: start: 20161222, end: 20250715
  2. Zanapam [Concomitant]
  3. PROPRANOLOL HYDROCHLORIDE [Concomitant]
     Active Substance: PROPRANOLOL HYDROCHLORIDE
  4. Proctin [Concomitant]
  5. Dulackhan [Concomitant]

REACTIONS (8)
  - Metabolic acidosis [Fatal]
  - Dyspnoea [Fatal]
  - Neutropenia [Recovered/Resolved]
  - Cold sweat [Unknown]
  - White blood cell count decreased [Recovered/Resolved]
  - Nausea [Unknown]
  - Diarrhoea [Unknown]
  - Vomiting [Unknown]

NARRATIVE: CASE EVENT DATE: 20250630
